FAERS Safety Report 6544690-6 (Version None)
Quarter: 2010Q1

REPORT INFORMATION
  Report Type: 
  Country: None (occurrence: None)
  Receive Date: 20100121
  Receipt Date: 20100112
  Transmission Date: 20100710
  Serious: Yes (Other)
  Sender: FDA-Public Use
  Company Number: US-JNJFOC-20090907177

PATIENT
  Sex: Male
  Weight: 90.72 kg

DRUGS (3)
  1. REMICADE [Suspect]
     Indication: RHEUMATOID ARTHRITIS
     Dosage: DOSAGE = ^5 MG^
     Route: 042
     Dates: start: 20090202, end: 20090818
  2. REMICADE [Suspect]
     Dosage: DOSAGE = ^5 MG^
     Route: 042
     Dates: start: 20090202, end: 20090818
  3. METHOTREXATE [Concomitant]
     Dosage: GREATER THAN 6 MONTHS
     Route: 065

REACTIONS (2)
  - PROSTATE CANCER [None]
  - RADIATION INJURY [None]
